FAERS Safety Report 25968532 (Version 3)
Quarter: 2025Q4

REPORT INFORMATION
  Report Type: Spontaneous
  Country: US (occurrence: US)
  Receive Date: 20251028
  Receipt Date: 20251121
  Transmission Date: 20260118
  Serious: Yes (Death, Hospitalization, Other)
  Sender: ACCORD
  Company Number: US-Accord-509289

PATIENT
  Age: 78 Year
  Sex: Male
  Weight: 63.78 kg

DRUGS (16)
  1. CARBOPLATIN [Suspect]
     Active Substance: CARBOPLATIN
     Indication: Small cell lung cancer
     Dosage: 420 MILLIGRAM, Q3W, IV DRIP
     Route: 042
     Dates: start: 20250616, end: 20250804
  2. ETOPOSIDE [Suspect]
     Active Substance: ETOPOSIDE
     Indication: Small cell lung cancer
     Dosage: 180 MILLIGRAM, Q3W; IV DRIP
     Route: 042
     Dates: start: 20250616, end: 20250806
  3. ASPIRIN [Concomitant]
     Active Substance: ASPIRIN
     Dosage: ONCE DAILY
     Route: 048
     Dates: start: 202508
  4. ATORVASTATIN [Concomitant]
     Active Substance: ATORVASTATIN
     Dosage: ONCE DAILY
     Route: 048
     Dates: start: 202508
  5. CARVEDILOL [Concomitant]
     Active Substance: CARVEDILOL
     Indication: Hypertension
     Dosage: ONCE DAILY
     Route: 048
     Dates: start: 202404, end: 202508
  6. FUROSEMIDE [Concomitant]
     Active Substance: FUROSEMIDE
     Indication: Hypertension
     Dosage: TWICE DAILY (BID)
     Route: 048
     Dates: start: 2024, end: 202508
  7. PANTOPRAZOLE [Concomitant]
     Active Substance: PANTOPRAZOLE
     Indication: Gastrooesophageal reflux disease
     Dosage: TWICE DAILY (BID)
     Route: 048
     Dates: start: 2025
  8. TAMSULOSIN [Concomitant]
     Active Substance: TAMSULOSIN
     Indication: Urinary retention
     Dosage: AS NEEDED (PRN)
     Route: 048
     Dates: start: 2022
  9. TRAZODONE [Concomitant]
     Active Substance: TRAZODONE HYDROCHLORIDE
     Indication: Insomnia
     Dosage: AS NEEDED
     Route: 048
     Dates: start: 2025, end: 202508
  10. ONDANSETRON [Concomitant]
     Active Substance: ONDANSETRON
     Indication: Nausea
     Dosage: AS NEEDED
     Route: 048
     Dates: start: 2025
  11. POTASSIUM CHLORIDE [Concomitant]
     Active Substance: POTASSIUM CHLORIDE
     Indication: Supplementation therapy
     Dosage: TWICE DAILY
     Route: 048
     Dates: start: 2025
  12. PLAVIX [Concomitant]
     Active Substance: CLOPIDOGREL BISULFATE
     Indication: Transient ischaemic attack
     Dosage: ONCE DAILY
     Route: 048
     Dates: start: 2025
  13. ELIQUIS [Concomitant]
     Active Substance: APIXABAN
     Indication: Cerebrovascular accident
     Dosage: TWICE DAILY
     Route: 048
     Dates: start: 202508
  14. MIDODRINE [Concomitant]
     Active Substance: MIDODRINE
     Indication: Hypotension
     Dosage: THREE TIME A DAY
     Route: 048
     Dates: start: 202508
  15. TRAMADOL [Concomitant]
     Active Substance: TRAMADOL
     Indication: Pain
     Dosage: ONCE EVERY 8 HOUR
     Route: 048
     Dates: start: 202508
  16. ZOLPIDEM [Concomitant]
     Active Substance: ZOLPIDEM TARTRATE
     Indication: Insomnia
     Dosage: ONCE DAILY
     Route: 048
     Dates: start: 202508

REACTIONS (12)
  - Muscular weakness [Recovering/Resolving]
  - Anaemia [Recovered/Resolved]
  - Fall [Unknown]
  - Hypotension [Unknown]
  - Ventricular tachycardia [Unknown]
  - Supraventricular extrasystoles [Unknown]
  - Hypokalaemia [Unknown]
  - Facial paralysis [Recovering/Resolving]
  - Hemiparesis [Unknown]
  - Confusional state [Recovering/Resolving]
  - Diarrhoea [Unknown]
  - Death [Fatal]

NARRATIVE: CASE EVENT DATE: 20250101
